FAERS Safety Report 9342971 (Version 1)
Quarter: 2013Q2

REPORT INFORMATION
  Report Type: Spontaneous
  Country: IT (occurrence: IT)
  Receive Date: 20130611
  Receipt Date: 20130611
  Transmission Date: 20140414
  Serious: Yes (Hospitalization)
  Sender: FDA-Public Use
  Company Number: IT-VERTEX PHARMACEUTICALS INC-2013-006941

PATIENT
  Age: 65 Year
  Sex: Male
  Weight: 85 kg

DRUGS (8)
  1. INCIVO [Suspect]
     Indication: CHRONIC HEPATITIS C
     Route: 048
     Dates: start: 20130318, end: 20130531
  2. PEGASYS [Suspect]
     Indication: CHRONIC HEPATITIS C
     Dosage: 180 ?G, QW
     Route: 058
     Dates: start: 20130318, end: 20130527
  3. COPEGUS [Suspect]
     Indication: CHRONIC HEPATITIS C
     Dosage: 400 MG, BID
     Route: 048
     Dates: start: 20130318, end: 20130531
  4. DIABREZIDE [Concomitant]
     Indication: DIABETES MELLITUS
     Dosage: 80 MG, UNK
     Dates: start: 201105
  5. RUPATADINE [Concomitant]
     Indication: RASH
     Dosage: 10 MG, UNK
     Route: 048
     Dates: start: 20130520
  6. PRITORPLUS [Concomitant]
     Indication: HYPERTENSION
     Dosage: DOSAGE FORM: TABLETS
     Route: 048
  7. HUMALOG [Concomitant]
     Indication: DIABETES MELLITUS
     Dosage: 15 DF, UNK
     Route: 058
  8. EPREX [Concomitant]
     Indication: ANAEMIA
     Dosage: DOSAGE FORM: UNSPECIFIED
     Route: 058

REACTIONS (1)
  - Pneumonia legionella [Recovered/Resolved]
